FAERS Safety Report 10398937 (Version 1)
Quarter: 2014Q3

REPORT INFORMATION
  Report Type: Spontaneous
  Country: GB (occurrence: None)
  Receive Date: 20140819
  Receipt Date: 20140819
  Transmission Date: 20150326
  Serious: Yes (Death)
  Sender: FDA-Public Use
  Company Number: AUR-APL-2014-08513

PATIENT
  Age: 78 Year
  Sex: Male

DRUGS (2)
  1. DIPHENHYDRAMINE (DIPHENHYDRAMINE) [Concomitant]
     Active Substance: DIPHENHYDRAMINE
  2. FLUOXETINE [Suspect]
     Active Substance: FLUOXETINE\FLUOXETINE HYDROCHLORIDE
     Indication: DEPRESSION
     Dosage: 20 MG, ONCE A DAY, UNKNOWN
     Dates: start: 20140312, end: 20140324

REACTIONS (2)
  - Completed suicide [None]
  - Drowning [None]

NARRATIVE: CASE EVENT DATE: 20140324
